FAERS Safety Report 4266773-6 (Version None)
Quarter: 2004Q1

REPORT INFORMATION
  Report Type: 
  Country: None (occurrence: None)
  Receive Date: 20040108
  Receipt Date: 20021031
  Transmission Date: 20041129
  Serious: No
  Sender: FDA-Public Use
  Company Number: US-BRISTOL-MYERS SQUIBB COMPANY-12097796

PATIENT
  Age: 65 Year
  Sex: Female

DRUGS (2)
  1. CARDIOLITE [Suspect]
     Indication: SCAN MYOCARDIAL PERFUSION
     Dosage: DOSAGE: 1ST DOSE: 11.1 MCI - REST STUDY          2ND DOSE: 34.1 MCI - TREADMILL STRESS
     Route: 042
     Dates: start: 20021025, end: 20021025
  2. ZANTAC [Concomitant]

REACTIONS (2)
  - ASTHENIA [None]
  - NAUSEA [None]
